FAERS Safety Report 9253331 (Version 1)
Quarter: 2013Q2

REPORT INFORMATION
  Report Type: Spontaneous
  Country: US (occurrence: US)
  Receive Date: 20130424
  Receipt Date: 20130424
  Transmission Date: 20140414
  Serious: No
  Sender: FDA-Public Use
  Company Number: US-009507513-1304USA013854

PATIENT
  Age: 76 Year
  Sex: Male

DRUGS (2)
  1. JANUVIA [Suspect]
     Indication: TYPE 2 DIABETES MELLITUS
     Dosage: 1 TIME DAILY IN MORNING
     Route: 048
     Dates: start: 201303
  2. PIOGLITAZONE HYDROCHLORIDE [Concomitant]

REACTIONS (1)
  - Haematuria [Unknown]
